FAERS Safety Report 5022064-7 (Version None)
Quarter: 2006Q2

REPORT INFORMATION
  Report Type: 
  Country: None (occurrence: None)
  Receive Date: 20060605
  Receipt Date: 20060524
  Transmission Date: 20061013
  Serious: No
  Sender: FDA-Public Use
  Company Number: TPA2006A00888

PATIENT
  Age: 78 Year
  Sex: Male
  Weight: 89.3586 kg

DRUGS (7)
  1. ROZEREM [Suspect]
     Indication: INSOMNIA
     Dosage: 8 MG, HS, PER ORAL
     Route: 048
     Dates: start: 20060522
  2. LIPITOR [Concomitant]
  3. PLAVIX [Concomitant]
  4. FISH OIL (FISH OIL) [Concomitant]
  5. FLAX SEED (LINUM USITATISSIMUM SEED OIL) [Concomitant]
  6. VITAMIN E [Concomitant]
  7. MULTIVITAMIN [Concomitant]

REACTIONS (3)
  - DRUG INEFFECTIVE [None]
  - INCORRECT DOSE ADMINISTERED [None]
  - INSOMNIA [None]
